FAERS Safety Report 8219098-8 (Version None)
Quarter: 2012Q1

REPORT INFORMATION
  Report Type: 
  Country: None (occurrence: None)
  Receive Date: 20120319
  Receipt Date: 20120308
  Transmission Date: 20120608
  Serious: Yes (Hospitalization)
  Sender: FDA-Public Use
  Company Number: BE-SANOFI-AVENTIS-2012SA016526

PATIENT
  Age: 73 Year
  Sex: Female
  Weight: 73.5 kg

DRUGS (9)
  1. HYDROCHLOROTHIAZIDE [Concomitant]
     Route: 048
     Dates: start: 20120215
  2. BISOPROLOL FUMARATE [Concomitant]
     Indication: HYPERTENSION
     Route: 048
  3. PANTOPRAZOLE [Concomitant]
     Indication: PROPHYLAXIS
  4. THERAPEUTIC RADIOPHARMACEUTICALS [Suspect]
     Indication: RECTAL CANCER
     Dosage: DOSE: 50.400 GY
     Route: 065
     Dates: start: 20110817, end: 20110923
  5. LEVOTHYROXINE SODIUM [Concomitant]
     Indication: HYPOTHYROIDISM
     Dosage: 1-0-0
     Route: 048
  6. METOCLOPRAMIDE [Concomitant]
  7. CAPECITABINE [Suspect]
     Indication: RECTAL CANCER
     Dosage: ACTUAL DOSE: 1750 MG
     Route: 048
     Dates: start: 20110817, end: 20120229
  8. OXALIPLATIN [Suspect]
     Indication: RECTAL CANCER
     Dosage: ACTUAL DOSE: 230.100 MG
     Route: 042
     Dates: start: 20110817, end: 20120307
  9. ENALAPRIL [Concomitant]
     Indication: HYPERTENSION
     Dosage: 0-0-1
     Route: 048
     Dates: start: 20120215

REACTIONS (4)
  - ATAXIA [None]
  - DYSARTHRIA [None]
  - TETANY [None]
  - TRANSIENT ISCHAEMIC ATTACK [None]
